FAERS Safety Report 8878458 (Version 1)
Quarter: 2012Q4

REPORT INFORMATION
  Report Type: 
  Country: US (occurrence: US)
  Receive Date: 20121025
  Receipt Date: 20121025
  Transmission Date: 20130627
  Serious: No
  Sender: FDA-Public Use
  Company Number: US-AMGEN-USASP2012023411

PATIENT
  Age: 57 Year
  Sex: Female
  Weight: 77.1 kg

DRUGS (16)
  1. ENBREL [Suspect]
     Indication: PRODUCT USED FOR UNKNOWN INDICATION
     Dosage: 50 mg, qwk
     Route: 058
  2. ENBREL [Suspect]
     Dosage: 50 mg, qwk
     Route: 058
     Dates: start: 20120420
  3. LEFLUNOMIDE [Concomitant]
     Dosage: 10 mg, UNK
  4. CELEXA                             /01400501/ [Concomitant]
     Dosage: 10 mg, UNK
  5. METOPROLOL [Concomitant]
     Dosage: 25 mg, UNK
  6. TRICOR                             /00090101/ [Concomitant]
     Dosage: 48 mg, UNK
  7. HYDROCHLOROTH [Concomitant]
     Dosage: 12.5 mg, UNK
  8. ACIPHEX [Concomitant]
     Dosage: 20 mg, UNK
  9. NAPROXEN [Concomitant]
     Dosage: 250 mg, UNK
  10. LORATADINE [Concomitant]
     Dosage: 10 mg, UNK
  11. AMLODIPINE [Concomitant]
     Dosage: 5 mg, UNK
  12. MELATONIN [Concomitant]
     Dosage: 1 mg, UNK
  13. MULTIVITAMIN                       /01229101/ [Concomitant]
     Dosage: UNK
  14. VITAMIN B-12 [Concomitant]
     Dosage: 5000 mug, UNK
  15. FOLIC ACID [Concomitant]
     Dosage: UNK
  16. HYDROXYCHLOROQUINE [Concomitant]
     Dosage: 200 mg, UNK

REACTIONS (1)
  - Chest X-ray abnormal [Unknown]
